FAERS Safety Report 7502223-1 (Version None)
Quarter: 2011Q2

REPORT INFORMATION
  Report Type: 
  Country: None (occurrence: None)
  Receive Date: 20110525
  Receipt Date: 20110519
  Transmission Date: 20111010
  Serious: Yes (Hospitalization)
  Sender: FDA-Public Use
  Company Number: US-AMGEN-USASP2011026304

PATIENT
  Age: 59 Year
  Sex: Male

DRUGS (1)
  1. VECTIBIX [Suspect]
     Indication: RECTAL CANCER
     Dates: start: 20110331, end: 20110414

REACTIONS (8)
  - NAUSEA [None]
  - CARDIAC FAILURE [None]
  - HYPOTENSION [None]
  - VENTRICULAR HYPOKINESIA [None]
  - DYSPNOEA [None]
  - RENAL FAILURE [None]
  - VOMITING [None]
  - DIARRHOEA [None]
